FAERS Safety Report 6027821-6 (Version None)
Quarter: 2009Q1

REPORT INFORMATION
  Report Type: 
  Country: None (occurrence: None)
  Receive Date: 20090105
  Receipt Date: 20081229
  Transmission Date: 20090719
  Serious: Yes (Hospitalization)
  Sender: FDA-Public Use
  Company Number: JP-B.I. PHARMACEUTICALS,INC./RIDGEFIELD-2008-BP-18565NB

PATIENT
  Sex: Male
  Weight: 61.5 kg

DRUGS (3)
  1. BI-SIFROL TABLETS [Suspect]
     Indication: PARKINSON'S DISEASE
     Dosage: 1.5MG
     Route: 048
     Dates: start: 20071225, end: 20081202
  2. NEODOPASOL [Suspect]
     Indication: PARKINSON'S DISEASE
     Dosage: 4ANZ
     Route: 048
     Dates: start: 20080717
  3. REQUIP [Concomitant]
     Indication: PARKINSON'S DISEASE
     Dosage: .75MG
     Route: 048
     Dates: start: 20080318, end: 20081211

REACTIONS (7)
  - AFFECTIVE DISORDER [None]
  - BIPOLAR I DISORDER [None]
  - DYSKINESIA [None]
  - EMOTIONAL DISORDER [None]
  - HYPOAESTHESIA [None]
  - IMPULSE-CONTROL DISORDER [None]
  - MANIA [None]
